FAERS Safety Report 4335989-2 (Version None)
Quarter: 2004Q2

REPORT INFORMATION
  Report Type: 
  Country: None (occurrence: None)
  Receive Date: 20040406
  Receipt Date: 20040325
  Transmission Date: 20050107
  Serious: Yes (Disabling)
  Sender: FDA-Public Use
  Company Number: HQWYE113325MAR04

PATIENT
  Age: 78 Year
  Sex: Female

DRUGS (2)
  1. CORDAREX        (AMIODARONE, TABLET) [Suspect]
     Indication: ATRIAL FIBRILLATION
     Dosage: 200 MG 1X PER 1 DAY ORAL
     Route: 048
     Dates: start: 20000101, end: 20040305
  2. CORDAREX        (AMIODARONE, TABLET) [Suspect]
     Indication: TACHYARRHYTHMIA
     Dosage: 200 MG 1X PER 1 DAY ORAL
     Route: 048
     Dates: start: 20000101, end: 20040305

REACTIONS (12)
  - ATAXIA [None]
  - BRADYARRHYTHMIA [None]
  - FAECAL INCONTINENCE [None]
  - HALLUCINATION [None]
  - HEPATITIS [None]
  - PARKINSON'S DISEASE [None]
  - PERIPHERAL SENSORIMOTOR NEUROPATHY [None]
  - POLYNEUROPATHY [None]
  - PSYCHOTIC DISORDER [None]
  - THYROXINE FREE INCREASED [None]
  - TREMOR [None]
  - URINARY INCONTINENCE [None]
